FAERS Safety Report 19136825 (Version 3)
Quarter: 2021Q2

REPORT INFORMATION
  Report Type: Spontaneous
  Country: GB (occurrence: GB)
  Receive Date: 20210414
  Receipt Date: 20210426
  Transmission Date: 20210717
  Serious: Yes (Death)
  Sender: FDA-Public Use
  Company Number: GB-BAYER-2021-120278

PATIENT
  Age: 3 Year
  Sex: Male
  Weight: 12.6 kg

DRUGS (1)
  1. NEXAVAR [Suspect]
     Active Substance: SORAFENIB
     Indication: HEPATOBLASTOMA
     Dosage: 200 MG, BID
     Dates: start: 20210211, end: 20210323

REACTIONS (7)
  - Asthenia [Recovering/Resolving]
  - Off label use [None]
  - Constipation [Recovering/Resolving]
  - Product use in unapproved indication [None]
  - Hepatoblastoma [Fatal]
  - Decreased activity [Recovering/Resolving]
  - Product administered to patient of inappropriate age [None]

NARRATIVE: CASE EVENT DATE: 202102
